FAERS Safety Report 11824283 (Version 3)
Quarter: 2015Q4

REPORT INFORMATION
  Report Type: Spontaneous
  Country: US (occurrence: US)
  Receive Date: 20151210
  Receipt Date: 20151231
  Transmission Date: 20160305
  Serious: Yes (Death, Other)
  Sender: FDA-Public Use
  Company Number: US-JNJFOC-20151203580

PATIENT

DRUGS (4)
  1. ULTRAM [Suspect]
     Active Substance: TRAMADOL HYDROCHLORIDE
     Indication: ACCIDENTAL EXPOSURE TO PRODUCT
     Route: 065
  2. ULTRAM [Suspect]
     Active Substance: TRAMADOL HYDROCHLORIDE
     Indication: COMPLETED SUICIDE
     Route: 065
  3. ULTRAM [Suspect]
     Active Substance: TRAMADOL HYDROCHLORIDE
     Indication: INTENTIONAL PRODUCT MISUSE
     Route: 065
  4. ULTRAM [Suspect]
     Active Substance: TRAMADOL HYDROCHLORIDE
     Indication: PAIN
     Route: 065

REACTIONS (26)
  - Agitation [Unknown]
  - Dizziness [Unknown]
  - Nausea [Unknown]
  - Confusional state [Unknown]
  - Hallucination [Unknown]
  - Hypotension [Unknown]
  - Electrolyte imbalance [Unknown]
  - Vomiting [Unknown]
  - Intentional product misuse [Unknown]
  - Hyperhidrosis [Unknown]
  - Headache [Unknown]
  - Dyspnoea [Unknown]
  - Somnolence [Unknown]
  - Lethargy [Unknown]
  - Accidental exposure to product [Unknown]
  - Seizure [Unknown]
  - Miosis [Unknown]
  - Pruritus [Unknown]
  - Death [Fatal]
  - Respiratory depression [Unknown]
  - Dysarthria [Unknown]
  - Delusion [Unknown]
  - Tachycardia [Unknown]
  - Coma [Unknown]
  - Tremor [Unknown]
  - Hypertension [Unknown]
